FAERS Safety Report 9203662 (Version 1)
Quarter: 2013Q2

REPORT INFORMATION
  Report Type: Spontaneous
  Country: US (occurrence: US)
  Receive Date: 20130402
  Receipt Date: 20130402
  Transmission Date: 20140414
  Serious: No
  Sender: FDA-Public Use
  Company Number: US-PFIZER INC-2013100402

PATIENT
  Age: 33 Year
  Sex: Female

DRUGS (4)
  1. MOTRIN [Suspect]
     Indication: PAIN
     Route: 065
     Dates: start: 200712, end: 200712
  2. LEVOFLOXACIN [Suspect]
     Indication: PYELONEPHRITIS
     Dosage: UNK
     Dates: start: 200712, end: 200712
  3. TOPIRAMATE [Suspect]
     Indication: MIGRAINE PROPHYLAXIS
     Dosage: UNK
  4. OXYCOCET [Suspect]
     Indication: PAIN
     Dates: end: 200712

REACTIONS (1)
  - Hepatic enzyme increased [Recovered/Resolved]
